FAERS Safety Report 4576104-X (Version None)
Quarter: 2005Q1

REPORT INFORMATION
  Report Type: 
  Country: None (occurrence: None)
  Receive Date: 20050201
  Receipt Date: 20050201
  Transmission Date: 20050727
  Serious: Yes (Other)
  Sender: FDA-Public Use
  Company Number: None

PATIENT
  Age: 80 Year
  Sex: Female
  Weight: 45.3597 kg

DRUGS (8)
  1. ACTOS [Suspect]
     Indication: DIABETES MELLITUS
     Dosage: 1 TABLET ORALLY DAILY
     Route: 048
     Dates: start: 20041029, end: 20050115
  2. LISINOPRIL [Concomitant]
  3. HYDROCHLOROTHIAZIDE [Concomitant]
  4. DIGOXIN [Concomitant]
  5. TOLAZAMIDE [Concomitant]
  6. FOSAMAX [Concomitant]
  7. METFORMIN HCL [Concomitant]
  8. COUMADIN [Concomitant]

REACTIONS (9)
  - ACIDOSIS [None]
  - ANURIA [None]
  - DECREASED APPETITE [None]
  - DYSPNOEA [None]
  - FLUID RETENTION [None]
  - HEPATIC FAILURE [None]
  - MALAISE [None]
  - MYOCARDIAL INFARCTION [None]
  - RENAL FAILURE ACUTE [None]
